FAERS Safety Report 8436187-3 (Version None)
Quarter: 2012Q2

REPORT INFORMATION
  Report Type: 
  Country: None (occurrence: None)
  Receive Date: 20120614
  Receipt Date: 20120613
  Transmission Date: 20120825
  Serious: Yes (Other)
  Sender: FDA-Public Use
  Company Number: US-PFIZER INC-2012133633

PATIENT
  Sex: Female

DRUGS (5)
  1. MORPHINE SULFATE [Suspect]
     Indication: PAIN
     Dosage: 15 MG, 2X/DAY
     Dates: start: 19940101, end: 20120518
  2. OXYCODONE HCL [Suspect]
     Indication: PRODUCT USED FOR UNKNOWN INDICATION
     Dosage: 5-10 MG, EVERY FOUR TO SIX HOURS
     Route: 048
     Dates: start: 19940101, end: 20120518
  3. OXYCONTIN [Suspect]
     Indication: BACK PAIN
     Dosage: 15 MG, 2X/DAY
     Route: 048
  4. MORPHINE SULFATE [Suspect]
     Indication: BACK INJURY
  5. OXYCONTIN [Suspect]
     Indication: PAIN

REACTIONS (5)
  - MULTIPLE SCLEROSIS [None]
  - DRUG DEPENDENCE [None]
  - RHEUMATOID ARTHRITIS [None]
  - DRUG ABUSE [None]
  - OSTEOARTHRITIS [None]
